FAERS Safety Report 10370416 (Version 1)
Quarter: 2014Q3

REPORT INFORMATION
  Report Type: Report from Study
  Country: US (occurrence: US)
  Receive Date: 20140808
  Receipt Date: 20140808
  Transmission Date: 20150326
  Serious: Yes (Hospitalization)
  Sender: FDA-Public Use
  Company Number: US-SA-2014SA104190

PATIENT
  Age: 82 Year
  Sex: Male

DRUGS (1)
  1. APIDRA [Suspect]
     Active Substance: INSULIN GLULISINE
     Indication: DIABETES MELLITUS
     Dosage: FREQUENCY: BEFORE MEALS. DOSE:35 UNIT(S)
     Route: 065

REACTIONS (1)
  - Bone marrow tumour cell infiltration [Not Recovered/Not Resolved]
